FAERS Safety Report 24214866 (Version 1)
Quarter: 2024Q3

REPORT INFORMATION
  Report Type: Spontaneous
  Country: IN (occurrence: IN)
  Receive Date: 20240815
  Receipt Date: 20240815
  Transmission Date: 20241017
  Serious: Yes (Other)
  Sender: TEVA
  Company Number: IN-ABBVIE-5873168

PATIENT
  Age: 45 Day
  Sex: Male
  Weight: 2.2 kg

DRUGS (1)
  1. ACITRETIN [Suspect]
     Active Substance: ACITRETIN
     Indication: Harlequin foetus
     Route: 065

REACTIONS (1)
  - Neutropenia [Unknown]
